FAERS Safety Report 5110124-1 (Version None)
Quarter: 2006Q3

REPORT INFORMATION
  Report Type: 
  Country: None (occurrence: None)
  Receive Date: 20060918
  Receipt Date: 20060912
  Transmission Date: 20061208
  Serious: Yes (Hospitalization)
  Sender: FDA-Public Use
  Company Number: S06-SWI-03758-01

PATIENT
  Age: 44 Year
  Sex: Male

DRUGS (2)
  1. CIPRALEX (ESCITALOPRAM) [Suspect]
     Indication: DEPRESSION
     Dosage: 10 MG QD PO
     Route: 048
     Dates: start: 20060614, end: 20060628
  2. CIPRALEX (ESCITALOPRAM) [Suspect]
     Indication: SOCIAL PHOBIA
     Dosage: 10 MG QD PO
     Route: 048
     Dates: start: 20060614, end: 20060628

REACTIONS (5)
  - HYPERVENTILATION [None]
  - NAUSEA [None]
  - TREMOR [None]
  - VISUAL DISTURBANCE [None]
  - VOMITING [None]
